FAERS Safety Report 13625607 (Version 2)
Quarter: 2017Q3

REPORT INFORMATION
  Report Type: Spontaneous
  Country: JP (occurrence: JP)
  Receive Date: 20170607
  Receipt Date: 20170705
  Transmission Date: 20171127
  Serious: Yes (Hospitalization, Other)
  Sender: FDA-Public Use
  Company Number: JP-PFIZER INC-2017244323

PATIENT
  Age: 78 Year
  Sex: Male
  Weight: 68 kg

DRUGS (8)
  1. UBRETID [Concomitant]
     Active Substance: DISTIGMINE BROMIDE
     Dosage: 5 MG, 1X/DAY
     Route: 048
  2. FEBURIC [Concomitant]
     Active Substance: FEBUXOSTAT
     Dosage: 20 MG, 1X/DAY
     Route: 048
  3. URIEF [Concomitant]
     Active Substance: SILODOSIN
     Dosage: 4 MG, 2X/DAY
     Route: 048
  4. ADALAT [Concomitant]
     Active Substance: NIFEDIPINE
     Dosage: 40 MG, 1X/DAY
     Route: 048
  5. NEUROTROPIN [Concomitant]
     Active Substance: NEUROTROPIN
     Dosage: 2 DF, 2X/DAY
     Route: 048
  6. ZALUTIA [Concomitant]
     Active Substance: TADALAFIL
     Dosage: 5 MG, 1X/DAY
     Route: 048
  7. VIBRAMYCIN [Suspect]
     Active Substance: DOXYCYCLINE
     Dosage: 2 DF, 2X/DAY
     Route: 048
     Dates: start: 20170529, end: 20170530
  8. AVOLVE [Concomitant]
     Active Substance: DUTASTERIDE
     Dosage: 0.5 MG, 1X/DAY
     Route: 048

REACTIONS (2)
  - Altered state of consciousness [Recovered/Resolved]
  - Hyponatraemia [Unknown]

NARRATIVE: CASE EVENT DATE: 20170531
